FAERS Safety Report 4602079-0 (Version None)
Quarter: 2005Q1

REPORT INFORMATION
  Report Type: 
  Country: None (occurrence: None)
  Receive Date: 20050308
  Receipt Date: 20050228
  Transmission Date: 20050727
  Serious: Yes (Hospitalization, Disabling)
  Sender: FDA-Public Use
  Company Number: DK-MERCK-0503DNK00005

PATIENT
  Age: 63 Year
  Sex: Female

DRUGS (6)
  1. ACETAMINOPHEN [Concomitant]
     Route: 065
     Dates: start: 20001004, end: 20040818
  2. ASPIRIN [Concomitant]
     Route: 065
     Dates: start: 20000810, end: 20041227
  3. FLUNITRAZEPAM [Concomitant]
     Route: 065
     Dates: start: 20000211, end: 20040202
  4. VIOXX [Suspect]
     Indication: ARTHRALGIA
     Route: 065
     Dates: start: 20001030, end: 20030314
  5. KETOBEMIDONE [Concomitant]
     Route: 065
     Dates: start: 20011001, end: 20020529
  6. ESTRADIOL [Concomitant]
     Route: 065
     Dates: start: 19921210, end: 20020124

REACTIONS (6)
  - CEREBROVASCULAR ACCIDENT [None]
  - DIFFICULTY IN WALKING [None]
  - DYSPHONIA [None]
  - GAIT DISTURBANCE [None]
  - HEADACHE [None]
  - VERTIGO [None]
